FAERS Safety Report 16384668 (Version 1)
Quarter: 2019Q2

REPORT INFORMATION
  Report Type: Spontaneous
  Country: DE (occurrence: DE)
  Receive Date: 20190603
  Receipt Date: 20190603
  Transmission Date: 20190711
  Serious: Yes (Other)
  Sender: FDA-Public Use
  Company Number: DE-JNJFOC-20190537164

PATIENT
  Sex: Female

DRUGS (2)
  1. REGAINE FRAUEN SCHAUM 5% [Suspect]
     Active Substance: MINOXIDIL
     Route: 065
  2. REGAINE FRAUEN SCHAUM 5% [Suspect]
     Active Substance: MINOXIDIL
     Indication: ALOPECIA
     Route: 065

REACTIONS (1)
  - Hypertension [Not Recovered/Not Resolved]
